FAERS Safety Report 8286834 (Version 3)
Quarter: 2012Q4

REPORT INFORMATION
  Report Type: 
  Country: US (occurrence: US)
  Receive Date: 20111213
  Receipt Date: 20121004
  Transmission Date: 20130627
  Serious: Yes (Death, Hospitalization, Other)
  Sender: FDA-Public Use
  Company Number: US-MPIJNJ-2011-06046

PATIENT
  Age: 72 None

DRUGS (1)
  1. VELCADE [Suspect]
     Indication: MULTIPLE MYELOMA
     Dosage: 2.5 mg, Cyclic
     Route: 042

REACTIONS (7)
  - Death [Fatal]
  - Clostridium difficile infection [Unknown]
  - Colitis [Unknown]
  - Portal vein thrombosis [Unknown]
  - Iron deficiency [Unknown]
  - Diarrhoea [Unknown]
  - Occult blood positive [Unknown]
